FAERS Safety Report 20868996 (Version 1)
Quarter: 2022Q2

REPORT INFORMATION
  Report Type: Spontaneous
  Country: US (occurrence: US)
  Receive Date: 20220524
  Receipt Date: 20220524
  Transmission Date: 20220721
  Serious: Yes (Hospitalization, Other)
  Sender: FDA-Public Use
  Company Number: US-INCYTE CORPORATION-2022IN005054

PATIENT

DRUGS (2)
  1. JAKAFI [Suspect]
     Active Substance: RUXOLITINIB
     Indication: Polycythaemia vera
     Dosage: 5 MG QAM, 10 MG QPM
     Route: 048
     Dates: start: 20211026
  2. JAKAFI [Suspect]
     Active Substance: RUXOLITINIB
     Dosage: 5 MG QAM, 10 MG QPM
     Route: 048
     Dates: start: 20211026

REACTIONS (4)
  - Staphylococcal infection [Unknown]
  - Neuropathy peripheral [Unknown]
  - Cellulitis [Unknown]
  - Peroneal nerve palsy [Unknown]
